FAERS Safety Report 13472461 (Version 1)
Quarter: 2017Q2

REPORT INFORMATION
  Report Type: Spontaneous
  Country: SI (occurrence: SI)
  Receive Date: 20170424
  Receipt Date: 20170424
  Transmission Date: 20170830
  Serious: Yes (Other)
  Sender: FDA-Public Use
  Company Number: SI-BAYER-2017-072497

PATIENT
  Age: 64 Year
  Sex: Female

DRUGS (4)
  1. STIVARGA [Suspect]
     Active Substance: REGORAFENIB
     Indication: METASTASES TO LIVER
     Dosage: DAILY DOSE 160 MG
     Dates: start: 201610, end: 201611
  2. STIVARGA [Suspect]
     Active Substance: REGORAFENIB
     Indication: ADENOCARCINOMA OF COLON
     Dosage: INTERMITTENT DOSE 120/160 MG
     Dates: start: 201612, end: 201701
  3. FOLFIRI [Concomitant]
     Active Substance: FLUOROURACIL\IRINOTECAN\LEUCOVORIN
     Indication: ADENOCARCINOMA
     Dosage: UNK
     Dates: start: 201609
  4. STIVARGA [Suspect]
     Active Substance: REGORAFENIB
     Indication: ADENOCARCINOMA OF COLON
     Dosage: DAILY DOSE 120 MG
     Dates: start: 20160923

REACTIONS (11)
  - Metastases to liver [None]
  - Decreased appetite [None]
  - Hypophosphataemia [None]
  - Stomatitis [None]
  - Decreased appetite [None]
  - Dysphonia [None]
  - Blood magnesium decreased [None]
  - Abdominal pain upper [None]
  - Weight decreased [None]
  - Palmar-plantar erythrodysaesthesia syndrome [None]
  - Fatigue [None]

NARRATIVE: CASE EVENT DATE: 201609
